FAERS Safety Report 15685196 (Version 1)
Quarter: 2018Q4

REPORT INFORMATION
  Report Type: Spontaneous
  Country: AU (occurrence: AU)
  Receive Date: 20181204
  Receipt Date: 20181204
  Transmission Date: 20190205
  Serious: Yes (Other)
  Sender: FDA-Public Use
  Company Number: AU-PFIZER INC-2018442609

PATIENT
  Age: 52 Year
  Sex: Female
  Weight: 60 kg

DRUGS (2)
  1. XELJANZ [Suspect]
     Active Substance: TOFACITINIB CITRATE
     Indication: RHEUMATOID ARTHRITIS
     Dosage: 5 MG, TWICE DAILY (BID)
     Route: 048
     Dates: start: 201808, end: 20181126
  2. SEPTRIN [Concomitant]
     Active Substance: SULFAMETHOXAZOLE\TRIMETHOPRIM
     Indication: INFECTION PROPHYLAXIS
     Dosage: UNK, 3 TIMES PER WEEK
     Route: 048
     Dates: start: 20180817

REACTIONS (2)
  - Hepatotoxicity [Recovering/Resolving]
  - Bacterial rhinitis [Not Recovered/Not Resolved]

NARRATIVE: CASE EVENT DATE: 201808
